FAERS Safety Report 4982143-7 (Version None)
Quarter: 2006Q2

REPORT INFORMATION
  Report Type: 
  Country: None (occurrence: None)
  Receive Date: 20060425
  Receipt Date: 20051207
  Transmission Date: 20061013
  Serious: Yes (Hospitalization, Disabling)
  Sender: FDA-Public Use
  Company Number: US-MERCK-0512USA01307

PATIENT
  Age: 34 Year
  Sex: Female
  Weight: 150 kg

DRUGS (2)
  1. VIOXX [Suspect]
     Indication: PAIN IN EXTREMITY
     Route: 048
     Dates: start: 20010101, end: 20030601
  2. VIOXX [Suspect]
     Route: 048
     Dates: start: 20010101, end: 20030601

REACTIONS (14)
  - AORTIC ARTERIOSCLEROSIS [None]
  - ATELECTASIS [None]
  - CARDIAC FAILURE CONGESTIVE [None]
  - CARDIOMEGALY [None]
  - CHEST PAIN [None]
  - DILATATION ATRIAL [None]
  - DYSPNOEA [None]
  - DYSPNOEA EXACERBATED [None]
  - OVERDOSE [None]
  - PERICARDIAL EFFUSION [None]
  - PLEURAL EFFUSION [None]
  - RENAL FAILURE [None]
  - RESPIRATION ABNORMAL [None]
  - VENTRICULAR HYPERTROPHY [None]
